FAERS Safety Report 22049551 (Version 1)
Quarter: 2023Q1

REPORT INFORMATION
  Report Type: Spontaneous
  Country: US (occurrence: US)
  Receive Date: 20230301
  Receipt Date: 20230301
  Transmission Date: 20230418
  Serious: Yes (Other)
  Sender: FDA-Public Use
  Company Number: US-PFIZER INC-202300083522

PATIENT
  Age: 70 Year
  Sex: Male

DRUGS (1)
  1. INLYTA [Suspect]
     Active Substance: AXITINIB
     Dosage: 5 MG, 2X/DAY (TAKE 1 TABLET (5 MG) BY MOUTH EVERY 12 HOURS)
     Route: 048
     Dates: start: 20220901, end: 202301

REACTIONS (10)
  - Uveitis [Unknown]
  - Hypothalamo-pituitary disorder [Unknown]
  - Hallucination [Unknown]
  - Anaemia [Unknown]
  - Adrenal disorder [Unknown]
  - Vision blurred [Unknown]
  - Secondary adrenocortical insufficiency [Unknown]
  - Eye pain [Unknown]
  - Visual impairment [Unknown]
  - Fatigue [Unknown]

NARRATIVE: CASE EVENT DATE: 20230101
